FAERS Safety Report 6408421-2 (Version None)
Quarter: 2009Q4

REPORT INFORMATION
  Report Type: 
  Country: None (occurrence: None)
  Receive Date: 20091016
  Receipt Date: 20091002
  Transmission Date: 20100525
  Serious: Yes (Other)
  Sender: FDA-Public Use
  Company Number: GXKR2009JP10933

PATIENT

DRUGS (1)
  1. AMLODIPINE BESYLATE SANDOZ (NGX) (AMLODIPINE) TABLET [Suspect]
     Dosage: 5 MG/DAY, ORAL
     Route: 048

REACTIONS (1)
  - LEUKOPLAKIA [None]
